FAERS Safety Report 8455426-6 (Version None)
Quarter: 2012Q2

REPORT INFORMATION
  Report Type: 
  Country: None (occurrence: None)
  Receive Date: 20120621
  Receipt Date: 20120613
  Transmission Date: 20120825
  Serious: Yes (Disabling)
  Sender: FDA-Public Use
  Company Number: US-JNJFOC-20120607058

PATIENT
  Sex: Female
  Weight: 104.33 kg

DRUGS (11)
  1. LYRICA [Suspect]
     Indication: PAIN
     Route: 065
     Dates: start: 20100601
  2. MELOXICAM [Suspect]
     Indication: ARTHRITIS
     Dosage: TAKEN DAILY
     Route: 065
     Dates: start: 20100601
  3. CYCLOBENZAPRINE HCL [Suspect]
     Indication: MUSCLE SPASMS
     Route: 065
     Dates: start: 20100601
  4. CYCLOBENZAPRINE HCL [Suspect]
     Route: 065
     Dates: start: 20100601
  5. CYCLOBENZAPRINE HCL [Suspect]
     Indication: BACK PAIN
     Route: 065
     Dates: start: 20100601
  6. MELOXICAM [Suspect]
     Indication: INFLAMMATION
     Dosage: TAKEN DAILY
     Route: 065
     Dates: start: 20100601
  7. HYDROCODONE BITARTRATE + ACETAMINOPHEN [Suspect]
     Indication: PAIN
     Dosage: 7.5/500 MG AS NEEDED INCREASED TO 10/500 MG AS NEEDED.
     Route: 065
     Dates: start: 20100601
  8. CYCLOBENZAPRINE HCL [Suspect]
     Indication: PAIN IN EXTREMITY
     Route: 065
     Dates: start: 20100601
  9. CYCLOBENZAPRINE HCL [Suspect]
     Route: 065
     Dates: start: 20100601
  10. CYCLOBENZAPRINE HCL [Suspect]
     Route: 065
     Dates: start: 20100601
  11. LYRICA [Suspect]
     Route: 065
     Dates: start: 20100601

REACTIONS (4)
  - HYPERTENSION [None]
  - INTERVERTEBRAL DISC DISORDER [None]
  - INCORRECT DRUG ADMINISTRATION DURATION [None]
  - NECK INJURY [None]
